FAERS Safety Report 22157860 (Version 2)
Quarter: 2023Q2

REPORT INFORMATION
  Report Type: Spontaneous
  Country: US (occurrence: US)
  Receive Date: 20230330
  Receipt Date: 20230403
  Transmission Date: 20230721
  Serious: Yes (Hospitalization, Other)
  Sender: FDA-Public Use
  Company Number: US-APIL-2309744US

PATIENT
  Sex: Female
  Weight: 54.431 kg

DRUGS (1)
  1. REFRESH TEARS [Suspect]
     Active Substance: CARBOXYMETHYLCELLULOSE SODIUM
     Indication: Dry eye
     Dosage: UNK UNK, BID
     Route: 047
     Dates: start: 2000

REACTIONS (6)
  - Cerebrovascular accident [Recovered/Resolved]
  - Eye infection [Recovered/Resolved]
  - Dry eye [Not Recovered/Not Resolved]
  - Glaucoma [Not Recovered/Not Resolved]
  - Asthenopia [Unknown]
  - Visual impairment [Not Recovered/Not Resolved]

NARRATIVE: CASE EVENT DATE: 20210101
